FAERS Safety Report 6482107-0 (Version None)
Quarter: 2009Q4

REPORT INFORMATION
  Report Type: 
  Country: None (occurrence: None)
  Receive Date: 20091208
  Receipt Date: 20090406
  Transmission Date: 20100525
  Serious: No
  Sender: FDA-Public Use
  Company Number: US-AMGEN-KDL341900

PATIENT
  Sex: Female

DRUGS (2)
  1. ENBREL [Suspect]
     Indication: RHEUMATOID ARTHRITIS
     Route: 058
     Dates: start: 20030601
  2. LEFLUNOMIDE [Concomitant]
     Route: 048

REACTIONS (9)
  - DRY EYE [None]
  - DRY SKIN [None]
  - INJECTION SITE ERYTHEMA [None]
  - INJECTION SITE PRURITUS [None]
  - NASOPHARYNGITIS [None]
  - PRURITUS [None]
  - TOOTH FRACTURE [None]
  - UPPER RESPIRATORY TRACT INFECTION [None]
  - VASODILATATION [None]
